FAERS Safety Report 22177969 (Version 1)
Quarter: 2023Q2

REPORT INFORMATION
  Report Type: Spontaneous
  Country: JP (occurrence: JP)
  Receive Date: 20230405
  Receipt Date: 20230405
  Transmission Date: 20230721
  Serious: Yes (Other)
  Sender: FDA-Public Use
  Company Number: JP-PFIZER INC-202300141605

PATIENT

DRUGS (1)
  1. UNASYN [Suspect]
     Active Substance: AMPICILLIN SODIUM\SULBACTAM SODIUM
     Dosage: UNK
     Route: 041
     Dates: start: 202301

REACTIONS (3)
  - Anaphylactic reaction [Unknown]
  - Loss of consciousness [Unknown]
  - Apallic syndrome [Unknown]

NARRATIVE: CASE EVENT DATE: 20230101
